FAERS Safety Report 10420244 (Version 1)
Quarter: 2014Q3

REPORT INFORMATION
  Report Type: Report from Study
  Country: US (occurrence: None)
  Receive Date: 20140804
  Receipt Date: 20140804
  Transmission Date: 20150326
  Serious: Yes (Hospitalization)
  Sender: FDA-Public Use
  Company Number: 2013US008734

PATIENT
  Age: 38 Year
  Sex: Male
  Weight: 54.9 kg

DRUGS (2)
  1. OXYGEN. [Concomitant]
     Active Substance: OXYGEN
  2. GLASSIA [Suspect]
     Active Substance: .ALPHA.1-PROTEINASE INHIBITOR HUMAN
     Indication: ALPHA-1 ANTI-TRYPSIN DEFICIENCY
     Dosage: 4000 +/- 10% WEEKLY, INTRAVENOUS
     Route: 042
     Dates: start: 20130401

REACTIONS (2)
  - Pneumonia [None]
  - Myocardial ischaemia [None]

NARRATIVE: CASE EVENT DATE: 20130807
